FAERS Safety Report 16631877 (Version 1)
Quarter: 2019Q3

REPORT INFORMATION
  Report Type: Spontaneous
  Country: JP (occurrence: JP)
  Receive Date: 20190725
  Receipt Date: 20190725
  Transmission Date: 20191004
  Serious: Yes (Death)
  Sender: FDA-Public Use
  Company Number: JP-ELI_LILLY_AND_COMPANY-JP201907010948

PATIENT
  Age: 76 Year
  Sex: Male
  Weight: 59.6 kg

DRUGS (11)
  1. XARELTO [Concomitant]
     Active Substance: RIVAROXABAN
     Dosage: 15 MG, DAILY
     Route: 048
     Dates: end: 20190618
  2. LOXOPROFEN [Concomitant]
     Active Substance: LOXOPROFEN
     Dosage: 60 MG, EVERY 8 HRS
     Route: 048
     Dates: end: 20190624
  3. BISOPROLOL [Concomitant]
     Active Substance: BISOPROLOL
     Dosage: 0.625 MG, DAILY
     Route: 048
     Dates: end: 20190624
  4. HALFDIGOXIN KY [Concomitant]
     Dosage: 0.125 MG, DAILY
     Route: 048
     Dates: end: 20190624
  5. FORTEO [Suspect]
     Active Substance: TERIPARATIDE
     Indication: OSTEOPOROSIS
     Dosage: 20 UG, DAILY
     Route: 058
     Dates: start: 20190614, end: 20190618
  6. LYRICA [Concomitant]
     Active Substance: PREGABALIN
     Dosage: 75 MG, BID
     Route: 048
     Dates: end: 20190624
  7. MAGNESIUM OXIDE. [Concomitant]
     Active Substance: MAGNESIUM OXIDE
     Dosage: 330 MG, EVERY 8 HRS
     Route: 048
     Dates: end: 20190624
  8. KETOPROFEN. [Concomitant]
     Active Substance: KETOPROFEN
     Dosage: 40 MG, DAILY
     Route: 062
  9. REBAMIPIDE [Concomitant]
     Active Substance: REBAMIPIDE
     Dosage: 100 MG, EVERY 8 HRS
     Route: 048
     Dates: end: 20190624
  10. FAMOTIDINE OD ME [Concomitant]
     Dosage: 20 MG, DAILY
     Route: 048
     Dates: end: 20190624
  11. TRAMADOL + ACETAMINOFEN [Concomitant]
     Active Substance: ACETAMINOPHEN\TRAMADOL
     Dosage: UNK, EVERY 6 HRS
     Route: 048
     Dates: end: 20190624

REACTIONS (1)
  - Interstitial lung disease [Fatal]

NARRATIVE: CASE EVENT DATE: 20190618
